FAERS Safety Report 9718401 (Version 1)
Quarter: 2013Q4

REPORT INFORMATION
  Report Type: Spontaneous
  Country: US (occurrence: US)
  Receive Date: 20131125
  Receipt Date: 20131125
  Transmission Date: 20140711
  Serious: No
  Sender: FDA-Public Use
  Company Number: US-VIVUS-2013V1000639

PATIENT
  Sex: Female
  Weight: 84.9 kg

DRUGS (3)
  1. QSYMIA 15MG/92MG [Suspect]
     Indication: OBESITY
     Route: 048
     Dates: start: 201307
  2. QSYMIA 7.5MG/46MG [Suspect]
     Indication: WEIGHT DECREASED
  3. QSYMIA 3.75MG/23MG [Suspect]
     Indication: WEIGHT DECREASED
     Dates: start: 201211

REACTIONS (1)
  - Cough [Unknown]
